FAERS Safety Report 14026571 (Version 2)
Quarter: 2019Q2

REPORT INFORMATION
  Report Type: Spontaneous
  Country: US (occurrence: US)
  Receive Date: 20170929
  Receipt Date: 20190507
  Transmission Date: 20190711
  Serious: Yes (Hospitalization)
  Sender: FDA-Public Use
  Company Number: US-CIPLA LTD.-2017US17668

PATIENT

DRUGS (6)
  1. LAMIVUDINE. [Concomitant]
     Active Substance: LAMIVUDINE
     Indication: ANTIRETROVIRAL THERAPY
     Dosage: 300 MILLIGRAM, QD (ONCE DAILY)
     Route: 065
  2. LOPINAVIR [Concomitant]
     Active Substance: LOPINAVIR
     Indication: ANTIRETROVIRAL THERAPY
     Dosage: 500 MILLIGRAM, BID (TWICE DAILY)
     Route: 065
  3. EFAVIRENZ. [Concomitant]
     Active Substance: EFAVIRENZ
     Indication: ANTIRETROVIRAL THERAPY
     Dosage: 600 MILLIGRAM, QD (ONCE DAILY)
     Route: 065
  4. FLUTICASONE PROPIONATE AND SALMETEROL [Interacting]
     Active Substance: FLUTICASONE PROPIONATE\SALMETEROL XINAFOATE
     Indication: CHRONIC OBSTRUCTIVE PULMONARY DISEASE
     Dosage: 2 PUFFS, BID
     Route: 055
  5. RITONAVIR. [Suspect]
     Active Substance: RITONAVIR
     Indication: ANTIRETROVIRAL THERAPY
     Dosage: 125 MILLIGRAM, BID, SINCE 9 MONTHS
     Route: 065
  6. IPRATROPIUM [Concomitant]
     Active Substance: IPRATROPIUM
     Indication: CHRONIC OBSTRUCTIVE PULMONARY DISEASE
     Dosage: UNK
     Route: 055

REACTIONS (4)
  - Fall [Recovered/Resolved]
  - Drug interaction [Unknown]
  - Toxicity to various agents [Recovered/Resolved]
  - Myopathy [Recovered/Resolved]
